FAERS Safety Report 12116819 (Version 5)
Quarter: 2025Q1

REPORT INFORMATION
  Report Type: Spontaneous
  Country: GB (occurrence: GB)
  Receive Date: 20160225
  Receipt Date: 20250303
  Transmission Date: 20250409
  Serious: Yes (Hospitalization, Other)
  Sender: LUNDBECK
  Company Number: None

PATIENT
  Age: 75 Year
  Sex: Female

DRUGS (5)
  1. CLOBAZAM [Suspect]
     Active Substance: CLOBAZAM
     Indication: Temporal lobe epilepsy
  2. VALPROATE SODIUM [Suspect]
     Active Substance: VALPROATE SODIUM
     Indication: Temporal lobe epilepsy
     Dosage: 400 MG IN THE MORNING AND 1200 MG AT NIGHT
     Route: 048
  3. EPILIM [Suspect]
     Active Substance: VALPROATE SODIUM
     Indication: Epilepsy
     Dosage: 1200 MILLIGRAM
     Route: 048
  4. EPILIM [Suspect]
     Active Substance: VALPROATE SODIUM
     Dosage: 400MG IN THE MORNING AND 400MG AT NIGHT
     Route: 048
  5. EPILIM [Suspect]
     Active Substance: VALPROATE SODIUM
     Dosage: 500 IN THE MORNING AND 500 AT NIGHT
     Route: 048

REACTIONS (14)
  - Seizure [Unknown]
  - Epilepsy [Unknown]
  - Eye pain [Unknown]
  - Oral pain [Unknown]
  - Abdominal pain upper [Unknown]
  - Eye contusion [Unknown]
  - Abnormal sleep-related event [Not Recovered/Not Resolved]
  - Somnambulism [Not Recovered/Not Resolved]
  - Amnesia [Not Recovered/Not Resolved]
  - Alopecia [Unknown]
  - Gingival pain [Unknown]
  - Fall [Not Recovered/Not Resolved]
  - Gingival bleeding [Unknown]
  - Lip swelling [Not Recovered/Not Resolved]
